FAERS Safety Report 5316173-2 (Version None)
Quarter: 2007Q2

REPORT INFORMATION
  Report Type: 
  Country: None (occurrence: None)
  Receive Date: 20070503
  Receipt Date: 20070426
  Transmission Date: 20071010
  Serious: Yes (Life-Threatening, Other)
  Sender: FDA-Public Use
  Company Number: DE-SHR-DE-2007-014005

PATIENT
  Age: 37 Year
  Sex: Female
  Weight: 67 kg

DRUGS (5)
  1. MIRENA [Suspect]
     Indication: CONTRACEPTION
     Dosage: 20 A?G/DAY, CONT
     Route: 015
     Dates: start: 20061113
  2. NAC DIAGNOSTIC REAGENT [Concomitant]
     Dosage: 1 TAB(S), 1X/DAY
     Dates: start: 19800101
  3. KREON [Concomitant]
     Dosage: 10 UNK, UNK
  4. TOBI [Concomitant]
     Dosage: UNK, 1X/MONTH
  5. DICLOFENAC [Concomitant]
     Dosage: 50 MG, 3X/DAY

REACTIONS (1)
  - BREAST CANCER FEMALE [None]
